FAERS Safety Report 7020439-8 (Version None)
Quarter: 2010Q3

REPORT INFORMATION
  Report Type: 
  Country: None (occurrence: None)
  Receive Date: 20100929
  Receipt Date: 20100921
  Transmission Date: 20110219
  Serious: Yes (Hospitalization, Other)
  Sender: FDA-Public Use
  Company Number: US-ASTRAZENECA-2008UW02380

PATIENT
  Age: 18088 Day
  Sex: Female
  Weight: 83.9 kg

DRUGS (4)
  1. PRILOSEC [Suspect]
     Indication: GASTROOESOPHAGEAL REFLUX DISEASE
     Route: 048
     Dates: start: 19990101
  2. PLAVIX [Concomitant]
     Dates: start: 20040101
  3. ASPIRIN [Concomitant]
  4. LANOXIN [Concomitant]

REACTIONS (6)
  - CORONARY ARTERY OCCLUSION [None]
  - GASTROENTERITIS VIRAL [None]
  - MYOCARDIAL INFARCTION [None]
  - PNEUMONIA [None]
  - RESPIRATORY FAILURE [None]
  - VENTRICULAR EXTRASYSTOLES [None]
